FAERS Safety Report 18648670 (Version 1)
Quarter: 2020Q4

REPORT INFORMATION
  Report Type: Spontaneous
  Country: US (occurrence: US)
  Receive Date: 20201222
  Receipt Date: 20201222
  Transmission Date: 20210114
  Serious: Yes (Hospitalization)
  Sender: FDA-Public Use
  Company Number: None

PATIENT
  Sex: Male
  Weight: 95.7 kg

DRUGS (1)
  1. TEMOZOLOMIDE (362856) [Suspect]
     Active Substance: TEMOZOLOMIDE
     Dates: end: 20201212

REACTIONS (3)
  - Seizure [None]
  - Muscle twitching [None]
  - Lethargy [None]

NARRATIVE: CASE EVENT DATE: 20201212
